FAERS Safety Report 6454143-1 (Version None)
Quarter: 2009Q4

REPORT INFORMATION
  Report Type: 
  Country: None (occurrence: None)
  Receive Date: 20091124
  Receipt Date: 20091120
  Transmission Date: 20100525
  Serious: No
  Sender: FDA-Public Use
  Company Number: US-B.I. PHARMACEUTICALS,INC./RIDGEFIELD-2009-BP-13567BP

PATIENT
  Sex: Male

DRUGS (4)
  1. SPIRIVA [Suspect]
     Indication: CHRONIC OBSTRUCTIVE PULMONARY DISEASE
     Dosage: 18 MCG
     Route: 055
     Dates: start: 20091001
  2. AMLODIPINE [Concomitant]
     Indication: HYPERTENSION
  3. EPOGEN [Concomitant]
     Indication: RENAL FAILURE
  4. ZEMPLAR [Concomitant]
     Indication: RENAL FAILURE

REACTIONS (1)
  - DRY MOUTH [None]
